FAERS Safety Report 24883748 (Version 1)
Quarter: 2025Q1

REPORT INFORMATION
  Report Type: Spontaneous
  Country: US (occurrence: None)
  Receive Date: 20250124
  Receipt Date: 20250124
  Transmission Date: 20250409
  Serious: Yes (Life-Threatening, Hospitalization)
  Sender: FDA-CTU
  Company Number: None

PATIENT
  Age: 63 Year
  Sex: Male
  Weight: 130.5 kg

DRUGS (1)
  1. XARELTO [Suspect]
     Active Substance: RIVAROXABAN
     Indication: Cardiac failure
     Dosage: 30 TABLETS  DAILY ORAL
     Route: 048
     Dates: start: 20241230, end: 20250113

REACTIONS (4)
  - Haematochezia [None]
  - Gastritis [None]
  - Liver disorder [None]
  - Renal disorder [None]

NARRATIVE: CASE EVENT DATE: 20250110
